FAERS Safety Report 5302393-X (Version None)
Quarter: 2007Q2

REPORT INFORMATION
  Report Type: 
  Country: None (occurrence: None)
  Receive Date: 20070413
  Receipt Date: 20070322
  Transmission Date: 20071010
  Serious: Yes (Disabling)
  Sender: FDA-Public Use
  Company Number: 2007RR-06445

PATIENT
  Age: 12 Year
  Sex: Male

DRUGS (1)
  1. SERTRALINE [Suspect]
     Indication: ANXIETY
     Dosage: 25 MG, QD, ORAL
     Route: 048
     Dates: start: 20060209, end: 20061113

REACTIONS (7)
  - DEPRESSION [None]
  - DRUG WITHDRAWAL SYNDROME [None]
  - EMOTIONAL DISORDER [None]
  - HYPERPHAGIA [None]
  - INSOMNIA [None]
  - LETHARGY [None]
  - TIC [None]
